FAERS Safety Report 7864948-8 (Version None)
Quarter: 2011Q4

REPORT INFORMATION
  Report Type: 
  Country: None (occurrence: None)
  Receive Date: 20111028
  Receipt Date: 20100923
  Transmission Date: 20120403
  Serious: No
  Sender: FDA-Public Use
  Company Number: US-GLAXOSMITHKLINE-A0882957A

PATIENT
  Age: 70 Year
  Sex: Female

DRUGS (8)
  1. LISINOPRIL [Concomitant]
  2. CLONIDINE [Concomitant]
  3. LEVOTHYROXINE SODIUM [Concomitant]
  4. ALPRAZOLAM [Concomitant]
  5. ASPIRIN [Concomitant]
  6. SPIRIVA [Concomitant]
  7. ADVAIR DISKUS 100/50 [Suspect]
     Indication: EMPHYSEMA
     Dosage: 1PUFF TWICE PER DAY
     Route: 055
     Dates: start: 20100921, end: 20100923
  8. ATENOLOL [Concomitant]

REACTIONS (6)
  - ORAL DISCOMFORT [None]
  - TOOTHACHE [None]
  - HEADACHE [None]
  - GLOSSODYNIA [None]
  - HYPERVENTILATION [None]
  - EMOTIONAL DISTRESS [None]
